FAERS Safety Report 4370921-7 (Version None)
Quarter: 2004Q2

REPORT INFORMATION
  Report Type: 
  Country: None (occurrence: None)
  Receive Date: 20040604
  Receipt Date: 20040602
  Transmission Date: 20050107
  Serious: Yes (Death, Hospitalization)
  Sender: FDA-Public Use
  Company Number: US-BRISTOL-MYERS SQUIBB COMPANY-12602363

PATIENT
  Sex: Male

DRUGS (3)
  1. TAXOL [Suspect]
     Indication: PROSTATE CANCER
     Dates: start: 20040528, end: 20040528
  2. ETOPOSIDE [Suspect]
     Indication: PROSTATE CANCER
     Dates: start: 20040528, end: 20040528
  3. EMCYT [Suspect]
     Indication: PROSTATE CANCER
     Dates: start: 20040528, end: 20040528

REACTIONS (4)
  - DEATH [None]
  - LOSS OF CONSCIOUSNESS [None]
  - NEUTROPENIA [None]
  - WHITE BLOOD CELL COUNT DECREASED [None]
